FAERS Safety Report 23434105 (Version 1)
Quarter: 2024Q1

REPORT INFORMATION
  Report Type: Spontaneous
  Country: JP (occurrence: JP)
  Receive Date: 20240123
  Receipt Date: 20240123
  Transmission Date: 20240409
  Serious: Yes (Death, Other)
  Sender: FDA-Public Use
  Company Number: JP-JAZZ PHARMACEUTICALS-2024-JP-001252

PATIENT
  Sex: Male

DRUGS (1)
  1. DEFITELIO [Suspect]
     Active Substance: DEFIBROTIDE SODIUM
     Indication: Venoocclusive liver disease
     Dosage: 328 MILLIGRAM, QD
     Route: 042
     Dates: start: 20231208, end: 20240103

REACTIONS (1)
  - Venoocclusive liver disease [Fatal]

NARRATIVE: CASE EVENT DATE: 20240103
